FAERS Safety Report 25779832 (Version 1)
Quarter: 2025Q3

REPORT INFORMATION
  Report Type: Spontaneous
  Country: US (occurrence: US)
  Receive Date: 20250909
  Receipt Date: 20250909
  Transmission Date: 20251021
  Serious: Yes (Death, Other)
  Sender: BIOVITRUM
  Company Number: US-BIOVITRUM-2025-US-012306

PATIENT
  Age: 68 Year
  Sex: Male

DRUGS (7)
  1. VONJO [Suspect]
     Active Substance: PACRITINIB
     Indication: Malignant mast cell neoplasm
     Route: 048
     Dates: end: 202508
  2. VONJO [Suspect]
     Active Substance: PACRITINIB
     Indication: Neoplasm
  3. VONJO [Suspect]
     Active Substance: PACRITINIB
     Indication: Histiocytic sarcoma
  4. OLMESARTAN MEDOXOMIL [Concomitant]
     Active Substance: OLMESARTAN MEDOXOMIL
     Indication: Product used for unknown indication
  5. AMLODIPINE BESYLATE [Concomitant]
     Active Substance: AMLODIPINE BESYLATE
     Indication: Product used for unknown indication
  6. CHILDRENS CHEWABLE ASPIRIN [Concomitant]
     Active Substance: ASPIRIN
     Indication: Product used for unknown indication
  7. ATORVASTATIN CALCIUM [Concomitant]
     Active Substance: ATORVASTATIN CALCIUM
     Indication: Product used for unknown indication

REACTIONS (2)
  - Death [Fatal]
  - Off label use [Recovered/Resolved]

NARRATIVE: CASE EVENT DATE: 20250810
